FAERS Safety Report 10212243 (Version 2)
Quarter: 2014Q2

REPORT INFORMATION
  Report Type: Spontaneous
  Country: US (occurrence: US)
  Receive Date: 20140602
  Receipt Date: 20140623
  Transmission Date: 20141212
  Serious: No
  Sender: FDA-Public Use
  Company Number: US-AMGEN-USASP2014034667

PATIENT
  Age: 63 Year
  Sex: Female
  Weight: 72.56 kg

DRUGS (14)
  1. ENBREL [Suspect]
     Indication: PSORIASIS
     Dosage: 50 MG, 2 TIMES/WK
     Route: 058
     Dates: start: 201209
  2. ELMIRON [Concomitant]
     Dosage: 100 MG, BID
  3. DILANTIN                           /00017401/ [Concomitant]
     Dosage: 100 MG, BID
  4. PRIMIDONE [Concomitant]
     Dosage: 50 MG, BID
  5. DEPAKOTE [Concomitant]
     Dosage: 500 MG, TID
  6. HTCZ [Concomitant]
     Dosage: 25 MG, QD
  7. CATAPRESS TTS [Concomitant]
     Dosage: 0.1 MG, QD
  8. NEXIUM                             /01479302/ [Concomitant]
     Dosage: 40 MG, QD
  9. VESICARE [Concomitant]
     Dosage: 5 MG, QD
  10. CRESTOR [Concomitant]
     Dosage: 20 MG, QD
  11. PAXIL                              /00500401/ [Concomitant]
     Dosage: 25 MG, QD
  12. BYSTOLIC [Concomitant]
     Dosage: 5 MG, QD
  13. CALCIUM [Concomitant]
     Dosage: 600 MG, QD
  14. ASPIRIN [Concomitant]
     Dosage: 81 MG, QD

REACTIONS (2)
  - Blood triglycerides increased [Not Recovered/Not Resolved]
  - Psoriasis [Not Recovered/Not Resolved]
